FAERS Safety Report 15547541 (Version 1)
Quarter: 2018Q4

REPORT INFORMATION
  Report Type: Spontaneous
  Country: US (occurrence: US)
  Receive Date: 20181024
  Receipt Date: 20181024
  Transmission Date: 20190205
  Serious: No
  Sender: FDA-Public Use
  Company Number: US-PERRIGO-18US005000

PATIENT
  Sex: Female

DRUGS (1)
  1. BUDESONIDE. [Suspect]
     Active Substance: BUDESONIDE
     Indication: COLITIS ULCERATIVE
     Dosage: UNKNOWN, UNKNOWN
     Route: 048
     Dates: start: 201805

REACTIONS (5)
  - Off label use [Unknown]
  - Diarrhoea [Unknown]
  - Dizziness [Unknown]
  - Faeces discoloured [Unknown]
  - Headache [Unknown]

NARRATIVE: CASE EVENT DATE: 201805
